FAERS Safety Report 7042209-7 (Version None)
Quarter: 2010Q4

REPORT INFORMATION
  Report Type: 
  Country: None (occurrence: None)
  Receive Date: 20101013
  Receipt Date: 20101011
  Transmission Date: 20110411
  Serious: Yes (Death)
  Sender: FDA-Public Use
  Company Number: US-CELGENEUS-163-21880-10080756

PATIENT
  Sex: Male

DRUGS (5)
  1. REVLIMID [Suspect]
     Indication: MULTIPLE MYELOMA
     Route: 048
     Dates: start: 20081223, end: 20100723
  2. REVLIMID [Suspect]
     Route: 048
     Dates: start: 20090301
  3. REVLIMID [Suspect]
     Route: 048
     Dates: start: 20091001
  4. REVLIMID [Suspect]
     Dosage: 5-10MG
     Route: 048
     Dates: start: 20100401
  5. REVLIMID [Suspect]
     Route: 048
     Dates: start: 20100601, end: 20100723

REACTIONS (1)
  - MULTIPLE MYELOMA [None]
